FAERS Safety Report 21400416 (Version 2)
Quarter: 2022Q4

REPORT INFORMATION
  Report Type: Spontaneous
  Country: IT (occurrence: IT)
  Receive Date: 20221003
  Receipt Date: 20221121
  Transmission Date: 20230112
  Serious: Yes (Death, Other)
  Sender: FDA-Public Use
  Company Number: IT-AMGEN-ITASP2022168189

PATIENT
  Age: 29 Year
  Sex: Female

DRUGS (1)
  1. XGEVA [Suspect]
     Active Substance: DENOSUMAB
     Indication: Bone giant cell tumour
     Dosage: UNK
     Route: 065

REACTIONS (4)
  - Death [Fatal]
  - Malignant transformation [Unknown]
  - Osteosarcoma [Unknown]
  - Bone giant cell tumour [Unknown]

NARRATIVE: CASE EVENT DATE: 20220101
